FAERS Safety Report 8247991-9 (Version None)
Quarter: 2012Q1

REPORT INFORMATION
  Report Type: 
  Country: None (occurrence: None)
  Receive Date: 20120330
  Receipt Date: 20120321
  Transmission Date: 20120608
  Serious: Yes (Other)
  Sender: FDA-Public Use
  Company Number: US-BRISTOL-MYERS SQUIBB COMPANY-16357469

PATIENT
  Age: 70 Year
  Sex: Female

DRUGS (1)
  1. ORENCIA [Suspect]
     Dosage: INF: 3. LAST INF: 17DEC11.
     Route: 042
     Dates: start: 20111201, end: 20111217

REACTIONS (2)
  - ARTHROPATHY [None]
  - INFLUENZA [None]
